FAERS Safety Report 8105634-9 (Version None)
Quarter: 2012Q1

REPORT INFORMATION
  Report Type: 
  Country: None (occurrence: None)
  Receive Date: 20120201
  Receipt Date: 20120124
  Transmission Date: 20120608
  Serious: Yes (Life-Threatening, Hospitalization)
  Sender: FDA-Public Use
  Company Number: ZA-GILEAD-2012-0048917

PATIENT
  Sex: Female

DRUGS (6)
  1. PYRIDOXINE HCL [Concomitant]
     Indication: PROPHYLAXIS
     Dosage: UNK UNK, QD
     Route: 048
     Dates: end: 20111215
  2. ISONIAZID [Concomitant]
     Indication: ANTIBIOTIC PROPHYLAXIS
     Dosage: UNK, QD
     Route: 048
     Dates: start: 20111118, end: 20111216
  3. VITAMIN B COMPLEX                  /00003501/ [Concomitant]
     Indication: SUPPLEMENTATION THERAPY
     Dosage: UNK UNK, QD
     Route: 048
     Dates: end: 20111215
  4. EMTRICITABINE/TENOFOVIR DISOPROXIL FUMARATE [Suspect]
     Indication: HIV INFECTION
     Dosage: 500 MG, QD
     Route: 048
     Dates: start: 20111118, end: 20111215
  5. EFAVIRENZ [Suspect]
     Indication: HIV INFECTION
     Dosage: 600 MG, QHS
     Route: 048
     Dates: start: 20111118, end: 20111215
  6. BACTRIM [Concomitant]
     Indication: ANTIFUNGAL PROPHYLAXIS
     Dosage: UNK UNK, QD
     Route: 048
     Dates: end: 20111215

REACTIONS (1)
  - HEPATITIS [None]
